FAERS Safety Report 8618478-6 (Version None)
Quarter: 2012Q2

REPORT INFORMATION
  Report Type: 
  Country: None (occurrence: None)
  Receive Date: 20120423
  Receipt Date: 20091020
  Transmission Date: 20120825
  Serious: Yes (Hospitalization)
  Sender: FDA-Public Use
  Company Number: PHEH2009US12025

PATIENT
  Age: 33 Year
  Sex: Female

DRUGS (1)
  1. EXJADE [Suspect]
     Indication: LEUKAEMIA
     Dosage: 1750 MG DAILY, ORAL
     Route: 048
     Dates: start: 20090618, end: 20090820

REACTIONS (1)
  - LEUKAEMIA RECURRENT [None]
